FAERS Safety Report 14475233 (Version 3)
Quarter: 2020Q3

REPORT INFORMATION
  Report Type: Report from Study
  Country: FR (occurrence: FR)
  Receive Date: 20180201
  Receipt Date: 20180404
  Transmission Date: 20201104
  Serious: Yes (Hospitalization)
  Sender: FDA-Public Use
  Company Number: FR-ASTRAZENECA-2018SE10589

PATIENT
  Age: 27245 Day
  Sex: Male
  Weight: 91.5 kg

DRUGS (11)
  1. TREMELIMUMAB. [Suspect]
     Active Substance: TREMELIMUMAB
     Indication: COLORECTAL CANCER
     Route: 042
     Dates: start: 20171030, end: 20180116
  2. PRETERAX [Concomitant]
     Active Substance: INDAPAMIDE\PERINDOPRIL
     Route: 065
  3. SPIRIVA RESPIMAT [Concomitant]
     Active Substance: TIOTROPIUM BROMIDE
     Route: 065
  4. LEVOTHYROX [Concomitant]
     Active Substance: LEVOTHYROXINE
     Route: 065
  5. FLUOROURACIL. [Suspect]
     Active Substance: FLUOROURACIL
     Indication: COLORECTAL CANCER
     Dosage: 166.67 MG, ( CUMUL. DOSE ?17766.67 MG)
     Route: 065
     Dates: start: 20171030, end: 20180116
  6. CRESTOR [Concomitant]
     Active Substance: ROSUVASTATIN CALCIUM
     Route: 065
  7. DURVALUMAB. [Suspect]
     Active Substance: DURVALUMAB
     Indication: COLORECTAL CANCER
     Route: 042
     Dates: start: 20171030, end: 20180116
  8. SYMBICORT [Concomitant]
     Active Substance: BUDESONIDE\FORMOTEROL FUMARATE DIHYDRATE
     Route: 065
  9. KARDEGIC [Concomitant]
     Active Substance: ASPIRIN DL-LYSINE
     Route: 065
  10. OXALIPLATIN. [Suspect]
     Active Substance: OXALIPLATIN
     Indication: COLORECTAL CANCER
     Dosage: 150 MG (CUMUL. DOSE 790 MG)
     Route: 065
     Dates: start: 20171030, end: 20180116
  11. CALCIUM FOLINATE [Suspect]
     Active Substance: LEUCOVORIN CALCIUM
     Indication: COLORECTAL CANCER
     Dosage: 400 MG (CUMUL. DOSE 2000 MG)
     Route: 065
     Dates: start: 20171030, end: 20180116

REACTIONS (1)
  - Infusion related reaction [Recovered/Resolved]

NARRATIVE: CASE EVENT DATE: 20180116
